FAERS Safety Report 18617868 (Version 2)
Quarter: 2020Q4

REPORT INFORMATION
  Report Type: Spontaneous
  Country: MK (occurrence: MK)
  Receive Date: 20201215
  Receipt Date: 20201221
  Transmission Date: 20210114
  Serious: Yes (Other)
  Sender: FDA-Public Use
  Company Number: MK-GE HEALTHCARE LIFE SCIENCES-2020CSU006400

PATIENT

DRUGS (2)
  1. CLARISCAN [Suspect]
     Active Substance: GADOTERATE MEGLUMINE
     Indication: DIAGNOSTIC PROCEDURE
     Dosage: 8 ML, SINGLE
     Route: 042
     Dates: start: 20201113, end: 20201113
  2. CLARISCAN [Suspect]
     Active Substance: GADOTERATE MEGLUMINE
     Indication: BACK PAIN

REACTIONS (2)
  - Asphyxia [Recovered/Resolved]
  - Chest discomfort [Recovered/Resolved]

NARRATIVE: CASE EVENT DATE: 20201113
